FAERS Safety Report 17436538 (Version 2)
Quarter: 2020Q1

REPORT INFORMATION
  Report Type: Spontaneous
  Country: US (occurrence: US)
  Receive Date: 20200219
  Receipt Date: 20200331
  Transmission Date: 20200409
  Serious: Yes (Hospitalization)
  Sender: FDA-Public Use
  Company Number: US-ASTRAZENECA-2020SE23181

PATIENT
  Age: 85 Day
  Weight: 3.7 kg

DRUGS (1)
  1. SYNAGIS [Suspect]
     Active Substance: PALIVIZUMAB
     Route: 030
     Dates: end: 20191216

REACTIONS (2)
  - Urinary tract infection [Unknown]
  - Cardiac disorder [Unknown]
